FAERS Safety Report 19268040 (Version 1)
Quarter: 2021Q2

REPORT INFORMATION
  Report Type: Report from Study
  Country: None (occurrence: US)
  Receive Date: 20210518
  Receipt Date: 20210518
  Transmission Date: 20210717
  Serious: Yes (Other)
  Sender: FDA-Public Use
  Company Number: US-ABBVIE-21K-163-3903478-00

PATIENT
  Age: 49 Year
  Sex: Female

DRUGS (4)
  1. ACYCLOVIR. [Suspect]
     Active Substance: ACYCLOVIR
     Indication: PRODUCT USED FOR UNKNOWN INDICATION
     Route: 065
  2. CAFFEINE. [Suspect]
     Active Substance: CAFFEINE
     Indication: PRODUCT USED FOR UNKNOWN INDICATION
     Route: 065
  3. FLONASE [Suspect]
     Active Substance: FLUTICASONE PROPIONATE
     Indication: PRODUCT USED FOR UNKNOWN INDICATION
     Route: 065
  4. HUMIRA [Suspect]
     Active Substance: ADALIMUMAB
     Indication: HIDRADENITIS
     Route: 058

REACTIONS (11)
  - Unevaluable event [Unknown]
  - Blindness unilateral [Unknown]
  - Typical aura without headache [Unknown]
  - Cold sweat [Unknown]
  - Cerebrovascular accident [Unknown]
  - Drug interaction [Unknown]
  - Fatigue [Unknown]
  - Hypoaesthesia [Unknown]
  - Visual impairment [Unknown]
  - Aura [Unknown]
  - Nausea [Unknown]

NARRATIVE: CASE EVENT DATE: 202105
